FAERS Safety Report 4681582-1 (Version None)
Quarter: 2005Q2

REPORT INFORMATION
  Report Type: 
  Country: None (occurrence: None)
  Receive Date: 20050602
  Receipt Date: 20050513
  Transmission Date: 20051028
  Serious: Yes (Other)
  Sender: FDA-Public Use
  Company Number: USA050291573

PATIENT
  Age: 10 Year
  Sex: Male
  Weight: 48.0813 kg

DRUGS (3)
  1. STRATTERA [Suspect]
     Indication: ATTENTION DEFICIT/HYPERACTIVITY DISORDER
     Dosage: 40 MG/1 DAY
     Dates: start: 20040224, end: 20050221
  2. ABILIFY (ARIPRAZOLE) [Concomitant]
  3. LEXAPRO [Concomitant]

REACTIONS (20)
  - BLOOD GLUCOSE INCREASED [None]
  - BLOOD POTASSIUM DECREASED [None]
  - BLOOD PRESSURE DIASTOLIC DECREASED [None]
  - CHROMATURIA [None]
  - COLITIS ULCERATIVE [None]
  - CONFUSIONAL STATE [None]
  - DIARRHOEA [None]
  - EPSTEIN-BARR VIRUS INFECTION [None]
  - GASTRIC DISORDER [None]
  - HAEMATEMESIS [None]
  - HAEMATOCRIT DECREASED [None]
  - HAEMOGLOBIN DECREASED [None]
  - HEPATIC STEATOSIS [None]
  - INFLUENZA LIKE ILLNESS [None]
  - OBESITY [None]
  - PHARYNGITIS STREPTOCOCCAL [None]
  - PRURITUS [None]
  - RED BLOOD CELL COUNT DECREASED [None]
  - SOMNOLENCE [None]
  - VIRAL INFECTION [None]
